FAERS Safety Report 7940964-2 (Version None)
Quarter: 2011Q4

REPORT INFORMATION
  Report Type: 
  Country: None (occurrence: None)
  Receive Date: 20111128
  Receipt Date: 20111122
  Transmission Date: 20120403
  Serious: Yes (Death, Hospitalization)
  Sender: FDA-Public Use
  Company Number: PHHY2011SG102419

PATIENT
  Age: 74 Year
  Sex: Male

DRUGS (1)
  1. WARFARIN SODIUM [Suspect]
     Dosage: UNK

REACTIONS (4)
  - HAEMARTHROSIS [None]
  - CORONARY ARTERY DISEASE [None]
  - ARTHRALGIA [None]
  - SWELLING [None]
